FAERS Safety Report 19987245 (Version 7)
Quarter: 2022Q4

REPORT INFORMATION
  Report Type: Report from Study
  Country: US (occurrence: US)
  Receive Date: 20211022
  Receipt Date: 20221212
  Transmission Date: 20230113
  Serious: Yes (Hospitalization)
  Sender: FDA-Public Use
  Company Number: US-BRISTOL-MYERS SQUIBB COMPANY-BMS-2021-108135

PATIENT
  Age: 62 Year
  Sex: Female
  Weight: 82 kg

DRUGS (35)
  1. NIVOLUMAB [Suspect]
     Active Substance: NIVOLUMAB
     Indication: Renal cell carcinoma
     Dosage: MOST RECENT DOSE RECEIVED ON 11-OCT-2021.?DRUG INTERRUPTED IN RESPONSE TO ANOREXIA.?DOSE NOT CHANGED
     Route: 042
     Dates: start: 20210913
  2. AXITINIB [Suspect]
     Active Substance: AXITINIB
     Indication: Renal cell carcinoma
     Dosage: MOST RECENT DOSE RECEIVED ON 15-OCT-2021.?DRUG INTERRUPTED IN RESPONSE TO ANOREXIA.?DOSE NOT CHANGED
     Dates: start: 20210913
  3. CALCIUM [Concomitant]
     Active Substance: CALCIUM
     Indication: Prophylaxis
     Route: 048
     Dates: start: 20210921
  4. CALCIUM [Concomitant]
     Active Substance: CALCIUM
  5. CALCIUM [Concomitant]
     Active Substance: CALCIUM
  6. MAGNESIUM [Concomitant]
     Active Substance: MAGNESIUM
     Indication: Prophylaxis
     Route: 048
     Dates: start: 20210921
  7. MAGNESIUM [Concomitant]
     Active Substance: MAGNESIUM
  8. MAGNESIUM [Concomitant]
     Active Substance: MAGNESIUM
  9. TYLENOL [Concomitant]
     Active Substance: ACETAMINOPHEN
     Indication: Prophylaxis
     Dosage: DOSE: 1 UNIT NOS AS NEEDED
     Route: 048
     Dates: start: 20210921
  10. TYLENOL [Concomitant]
     Active Substance: ACETAMINOPHEN
  11. TYLENOL [Concomitant]
     Active Substance: ACETAMINOPHEN
  12. VITAMIN D2 [Concomitant]
     Active Substance: ERGOCALCIFEROL
     Indication: Prophylaxis
     Dosage: DOSE: 50000 UNIT NOS ONE TIME PER WEEK
     Route: 048
     Dates: start: 20190823
  13. VITAMIN D2 [Concomitant]
     Active Substance: ERGOCALCIFEROL
  14. VITAMIN D2 [Concomitant]
     Active Substance: ERGOCALCIFEROL
  15. ASPIRIN [Concomitant]
     Active Substance: ASPIRIN
     Indication: Prophylaxis
     Route: 048
     Dates: start: 2021, end: 20220301
  16. VITAMINS [Concomitant]
     Active Substance: VITAMINS
     Indication: Prophylaxis
     Dosage: DOSE: 1 UNIT NOS DAILY; PER DAY
     Route: 048
     Dates: start: 20210921
  17. GLYCOPYRROLATE-FORMOTEROL (BEVESPI AEROSPHERE) [Concomitant]
     Indication: Product used for unknown indication
     Dosage: DOSE: 9 UNITS NOS, AS NEEDED
     Route: 055
     Dates: start: 20190903
  18. IPRATROPIUM BROMIDE AND ALBUTEROL SULFATE NEBULIZER TREATMENT [Concomitant]
     Indication: Product used for unknown indication
     Dosage: AS NEEDED
     Route: 055
     Dates: start: 20210916
  19. AMLODIPINE [Concomitant]
     Active Substance: AMLODIPINE BESYLATE
     Indication: Prophylaxis
     Route: 048
     Dates: start: 20210927, end: 20211010
  20. AMLODIPINE [Concomitant]
     Active Substance: AMLODIPINE BESYLATE
     Route: 048
     Dates: start: 20211012, end: 20211031
  21. AMLODIPINE [Concomitant]
     Active Substance: AMLODIPINE BESYLATE
     Route: 048
     Dates: start: 20210916, end: 20211011
  22. FLUTICASONE [Concomitant]
     Active Substance: FLUTICASONE
     Indication: Prophylaxis
     Dosage: DOSE: 50 UNIT NOS TWICE PER DAY
     Route: 045
     Dates: start: 20190903
  23. COLACE [Concomitant]
     Active Substance: DOCUSATE SODIUM
     Indication: Prophylaxis
     Dosage: AS NEEDED
     Route: 048
     Dates: start: 202109
  24. FEXOFENIDINE(ALLEGRA) [Concomitant]
     Indication: Product used for unknown indication
     Dosage: AS NEEDED
     Route: 048
     Dates: start: 2021
  25. TRELEGY ELLIPTA [Concomitant]
     Active Substance: FLUTICASONE FUROATE\UMECLIDINIUM BROMIDE\VILANTEROL TRIFENATATE
     Indication: Product used for unknown indication
     Dosage: DOSE: 100 UNITS NOS, AS NEEDED
     Route: 055
     Dates: start: 2021
  26. AZELASTINE [Concomitant]
     Active Substance: AZELASTINE
     Indication: Product used for unknown indication
     Dosage: DOSE: 132 UNITS NOS, BID
     Route: 045
     Dates: start: 20210801
  27. PROCHLORPERAZINE (COMPAZINE) [Concomitant]
     Indication: Nausea
     Dosage: AS NEEDED
     Route: 048
     Dates: start: 20210927
  28. PREDNISONE [Concomitant]
     Active Substance: PREDNISONE
     Indication: Asthma
     Route: 048
     Dates: start: 20210928, end: 20211001
  29. PROZAC [Concomitant]
     Active Substance: FLUOXETINE HYDROCHLORIDE
     Indication: Product used for unknown indication
     Route: 048
     Dates: start: 20190823, end: 20220124
  30. CETIRIZINE(ZYRTEC) [Concomitant]
     Indication: Prophylaxis
     Dosage: AS NEEDED
     Route: 048
     Dates: start: 2021
  31. SENNOSIDES (SENOKOT) [Concomitant]
     Indication: Prophylaxis
     Dosage: AS NEEDED
     Route: 048
     Dates: start: 202109
  32. PFIZER-BIONTECH COVID-19 VACCINE [Concomitant]
     Active Substance: TOZINAMERAN
     Indication: Prophylaxis
     Dosage: 1 ST DOSE
     Route: 030
     Dates: start: 20210405
  33. PFIZER-BIONTECH COVID-19 VACCINE [Concomitant]
     Active Substance: TOZINAMERAN
     Dosage: 2 ND DOSE
     Route: 030
     Dates: start: 20210427
  34. FLU VACCINE MDCK QUAD PF 2Y+ IM - FLUCELVAX [Concomitant]
     Indication: Prophylaxis
     Dosage: UNK
     Route: 030
     Dates: start: 20211004
  35. (LOPERAMIDE)IMODIUM [Concomitant]
     Indication: Prophylaxis
     Dosage: AS NEEDED
     Route: 048
     Dates: start: 20211015

REACTIONS (2)
  - Muscular weakness [Recovered/Resolved]
  - Decreased appetite [Recovered/Resolved]

NARRATIVE: CASE EVENT DATE: 20211015
